FAERS Safety Report 5875872-4 (Version None)
Quarter: 2008Q3

REPORT INFORMATION
  Report Type: 
  Country: None (occurrence: None)
  Receive Date: 20080908
  Receipt Date: 20080731
  Transmission Date: 20090109
  Serious: No
  Sender: FDA-Public Use
  Company Number: ADE# 08-121

PATIENT
  Sex: Male
  Weight: 74.3899 kg

DRUGS (6)
  1. METOPROLOL TARTRATE [Suspect]
     Indication: ATRIAL FIBRILLATION
     Dosage: 25MG EVERY 4-6 HOURS, AS NEEDED
     Dates: start: 20070701
  2. WARFARIN SODIUM [Concomitant]
  3. FINASTERIDE [Concomitant]
  4. ASTELIN [Concomitant]
  5. METOPROLOL SUCCINATE EXTENDED RELEASE [Concomitant]
  6. SIMVASTATIN [Concomitant]

REACTIONS (2)
  - DRUG EFFECT DECREASED [None]
  - THERAPEUTIC RESPONSE UNEXPECTED WITH DRUG SUBSTITUTION [None]
